FAERS Safety Report 23991613 (Version 1)
Quarter: 2024Q2

REPORT INFORMATION
  Report Type: Spontaneous
  Country: DE (occurrence: DE)
  Receive Date: 20240619
  Receipt Date: 20240619
  Transmission Date: 20240716
  Serious: Yes (Other)
  Sender: FDA-Public Use
  Company Number: DE-BRISTOL-MYERS SQUIBB COMPANY-2024-091927

PATIENT
  Age: 72 Year
  Sex: Female

DRUGS (14)
  1. DEXAMETHASONE [Suspect]
     Active Substance: DEXAMETHASONE
     Indication: Plasma cell myeloma
     Dosage: LINE-1UNK
     Route: 065
     Dates: start: 20190420, end: 20210225
  2. DEXAMETHASONE [Suspect]
     Active Substance: DEXAMETHASONE
     Dosage: UNK
     Route: 065
     Dates: end: 20200521
  3. REVLIMID [Suspect]
     Active Substance: LENALIDOMIDE
     Indication: Plasma cell myeloma
     Dosage: UNK
     Route: 065
     Dates: end: 20200520
  4. REVLIMID [Suspect]
     Active Substance: LENALIDOMIDE
     Dosage: LINE-1UNK
     Route: 065
     Dates: start: 20190713, end: 20200715
  5. B12 DEPOT ROTEXMEDICA [Concomitant]
     Indication: Product used for unknown indication
     Dosage: 1000.000UG
     Route: 058
     Dates: start: 20191015, end: 20230824
  6. CALCIUM [Concomitant]
     Active Substance: CALCIUM
     Indication: Product used for unknown indication
     Dosage: 1000.000MG QD
     Route: 048
     Dates: start: 20190904
  7. CANDESARTAN [Concomitant]
     Active Substance: CANDESARTAN
     Indication: Product used for unknown indication
     Dosage: 0 MG
     Route: 048
  8. CEFUROXIME AXETIL [Concomitant]
     Active Substance: CEFUROXIME AXETIL
     Indication: Product used for unknown indication
     Dosage: -NOV-2019
     Route: 048
     Dates: start: 20191024
  9. CEFUROXIME AXETIL [Concomitant]
     Active Substance: CEFUROXIME AXETIL
     Dosage: SEP-2020
     Route: 048
     Dates: start: 20200911
  10. LYRICA [Concomitant]
     Active Substance: PREGABALIN
     Indication: Product used for unknown indication
     Dosage: 25.000MG
     Route: 048
     Dates: start: 20210401
  11. Novalgin [Concomitant]
     Indication: Product used for unknown indication
     Dosage: NULL ML, FREQUENCY: AS NEEDED
     Route: 048
     Dates: start: 20200203
  12. THYROX [Concomitant]
     Indication: Product used for unknown indication
     Dosage: 50.000UG QD
     Route: 048
  13. NALOXONE HYDROCHLORIDE\TILIDINE HYDROCHLORIDE [Concomitant]
     Active Substance: NALOXONE HYDROCHLORIDE\TILIDINE HYDROCHLORIDE
     Indication: Product used for unknown indication
     Dosage: NULL ML, FREQUENCY: AS NEEDED
     Route: 048
     Dates: start: 20200818, end: 2022
  14. ZOLPIDEM [Concomitant]
     Active Substance: ZOLPIDEM TARTRATE
     Indication: Product used for unknown indication
     Dosage: 10.000MG QD
     Route: 048
     Dates: start: 20211014

REACTIONS (1)
  - Leukopenia [Recovered/Resolved]

NARRATIVE: CASE EVENT DATE: 20200526
